FAERS Safety Report 20157808 (Version 1)
Quarter: 2021Q4

REPORT INFORMATION
  Report Type: Spontaneous
  Country: None (occurrence: US)
  Receive Date: 20211207
  Receipt Date: 20211207
  Transmission Date: 20220303
  Serious: No
  Sender: FDA-Public Use
  Company Number: US-Nexgen Pharma, Inc.-2122769

PATIENT
  Age: 53 Year
  Sex: Female

DRUGS (1)
  1. CHENODAL [Suspect]
     Active Substance: CHENODIOL
     Indication: Glycogen storage disorder
     Route: 048
     Dates: start: 20101202, end: 20211027

REACTIONS (3)
  - COVID-19 [Unknown]
  - Asthenia [Unknown]
  - Hypersomnia [Unknown]
